FAERS Safety Report 20611593 (Version 2)
Quarter: 2022Q1

REPORT INFORMATION
  Report Type: Spontaneous
  Country: US (occurrence: None)
  Receive Date: 20220318
  Receipt Date: 20220322
  Transmission Date: 20220423
  Serious: Yes (Hospitalization)
  Sender: FDA-Public Use
  Company Number: 2022A111697

PATIENT
  Sex: Female
  Weight: 93 kg

DRUGS (1)
  1. NEXIUM [Suspect]
     Active Substance: ESOMEPRAZOLE MAGNESIUM
     Indication: Gastrooesophageal reflux disease
     Route: 048

REACTIONS (8)
  - Status asthmaticus [Unknown]
  - Oesophagitis [Unknown]
  - Wheezing [Unknown]
  - Dyspepsia [Unknown]
  - Cough [Unknown]
  - Impaired gastric emptying [Unknown]
  - Erythema [Unknown]
  - Bronchospasm [Unknown]
